FAERS Safety Report 4615685-4 (Version None)
Quarter: 2005Q1

REPORT INFORMATION
  Report Type: 
  Country: None (occurrence: None)
  Receive Date: 20050317
  Receipt Date: 20050311
  Transmission Date: 20050727
  Serious: Yes (Hospitalization, Other)
  Sender: FDA-Public Use
  Company Number: 200510610GDS

PATIENT
  Age: 55 Year
  Sex: Male
  Weight: 80 kg

DRUGS (5)
  1. ASPIRIN TAB [Suspect]
     Indication: THROMBOSIS PROPHYLAXIS
     Dosage: SEE IMAGE
  2. NEUTRAL PROTAMINE HAGEDORN [Concomitant]
  3. INSULIN [Concomitant]
  4. GLIPIZIDE [Concomitant]
  5. LISINOPRIL [Concomitant]

REACTIONS (5)
  - EXTRADURAL HAEMATOMA [None]
  - FAECAL INCONTINENCE [None]
  - POST PROCEDURAL COMPLICATION [None]
  - SPINAL CORD COMPRESSION [None]
  - URINARY INCONTINENCE [None]
